FAERS Safety Report 20444313 (Version 4)
Quarter: 2022Q1

REPORT INFORMATION
  Report Type: Spontaneous
  Country: AU (occurrence: AU)
  Receive Date: 20220208
  Receipt Date: 20220329
  Transmission Date: 20220423
  Serious: Yes (Life-Threatening, Hospitalization, Other)
  Sender: FDA-Public Use
  Company Number: AU-SA-SAC20220129000225

PATIENT
  Age: 28 Year
  Sex: Female
  Weight: 55 kg

DRUGS (4)
  1. CAPLACIZUMAB [Suspect]
     Active Substance: CAPLACIZUMAB
     Indication: Thrombotic thrombocytopenic purpura
     Dosage: 10 MG, QD
     Route: 058
     Dates: start: 20211224, end: 20220124
  2. AMINO ACIDS\ELECTROLYTES NOS [Concomitant]
     Active Substance: AMINO ACIDS\ELECTROLYTES NOS
     Dates: end: 20220116
  3. ENOXAPARIN SODIUM [Concomitant]
     Active Substance: ENOXAPARIN SODIUM
     Indication: Thrombosis prophylaxis
     Dosage: 40 MG, QD
     Route: 058
     Dates: start: 20211229, end: 20220124
  4. ASPIRIN [Concomitant]
     Active Substance: ASPIRIN
     Dosage: 1000 MG, QD
     Route: 048
     Dates: start: 20121229, end: 20220124

REACTIONS (8)
  - Haematemesis [Recovered/Resolved]
  - Haemorrhage [Recovered/Resolved]
  - Upper gastrointestinal haemorrhage [Unknown]
  - Pancreatitis necrotising [Not Recovered/Not Resolved]
  - Gastrointestinal haemorrhage [Not Recovered/Not Resolved]
  - Blood lactate dehydrogenase increased [Unknown]
  - ADAMTS13 activity decreased [Unknown]
  - Platelet count decreased [Unknown]

NARRATIVE: CASE EVENT DATE: 20220118
